FAERS Safety Report 23237907 (Version 1)
Quarter: 2023Q4

REPORT INFORMATION
  Report Type: Report from Study
  Country: US (occurrence: US)
  Receive Date: 20231128
  Receipt Date: 20231128
  Transmission Date: 20240109
  Serious: Yes (Hospitalization, Other)
  Sender: FDA-Public Use
  Company Number: US-TAKEDA-2023TUS113602

PATIENT
  Sex: Male
  Weight: 56.68 kg

DRUGS (16)
  1. MARIBAVIR [Suspect]
     Active Substance: MARIBAVIR
     Indication: Product used for unknown indication
     Dosage: 2 DOSAGE FORM, BID
     Route: 065
  2. AMLODIPINE [Concomitant]
     Active Substance: AMLODIPINE BESYLATE
     Dosage: 1 DOSAGE FORM, QD
     Route: 048
     Dates: start: 20230303
  3. BACLOFEN [Concomitant]
     Active Substance: BACLOFEN
     Dosage: 1 DOSAGE FORM, Q8HR
     Dates: start: 20230921
  4. BACTRIM [Concomitant]
     Active Substance: SULFAMETHOXAZOLE\TRIMETHOPRIM
     Dosage: 1 DOSAGE FORM, QD
     Route: 048
     Dates: start: 20230829
  5. BACTRIM [Concomitant]
     Active Substance: SULFAMETHOXAZOLE\TRIMETHOPRIM
     Dosage: UNK
     Route: 048
     Dates: start: 20231120
  6. CHLORPROMAZINE [Concomitant]
     Active Substance: CHLORPROMAZINE
     Dosage: 1 DOSAGE FORM, Q8HR
     Route: 048
  7. HYDROCORTISONE [Concomitant]
     Active Substance: HYDROCORTISONE
     Dosage: UNK, BID
     Dates: start: 20230925
  8. JAKAFI [Concomitant]
     Active Substance: RUXOLITINIB
     Dosage: 1 DOSAGE FORM, BID
     Route: 048
     Dates: start: 20231016
  9. DIPHENOXYLATE [Concomitant]
     Active Substance: DIPHENOXYLATE
     Dosage: 1 DOSAGE FORM
     Dates: start: 20231010
  10. OMEPRAZOLE [Concomitant]
     Active Substance: OMEPRAZOLE
     Dosage: 1 DOSAGE FORM
     Route: 048
     Dates: start: 20230921
  11. POSACONAZOLE [Concomitant]
     Active Substance: POSACONAZOLE
     Dosage: 3 DOSAGE FORM, QD
     Route: 048
     Dates: start: 20231120
  12. POSACONAZOLE [Concomitant]
     Active Substance: POSACONAZOLE
     Dosage: 1 DOSAGE FORM, TID
     Route: 048
     Dates: start: 20230829
  13. PREDNISONE [Concomitant]
     Active Substance: PREDNISONE
     Dosage: 3 DOSAGE FORM, QD
     Dates: start: 20231002
  14. REFRESH TEARS [Concomitant]
     Active Substance: CARBOXYMETHYLCELLULOSE SODIUM
     Dosage: UNK
     Dates: start: 20230925
  15. TACROLIMUS [Concomitant]
     Active Substance: TACROLIMUS
     Dosage: 3 DOSAGE FORM, BID
     Dates: start: 20231016
  16. TRIAMCINOLONE ACETONIDE [Concomitant]
     Active Substance: TRIAMCINOLONE ACETONIDE
     Dosage: UNK UNK, BID
     Dates: start: 20230925

REACTIONS (5)
  - Graft versus host disease [Unknown]
  - Muscular weakness [Unknown]
  - Platelet count decreased [Unknown]
  - Cytomegalovirus test positive [Unknown]
  - Full blood count decreased [Unknown]
